FAERS Safety Report 18606891 (Version 2)
Quarter: 2020Q4

REPORT INFORMATION
  Report Type: Spontaneous
  Country: TW (occurrence: TW)
  Receive Date: 20201211
  Receipt Date: 20201218
  Transmission Date: 20210114
  Serious: Yes (Death, Life-Threatening, Hospitalization, Other)
  Sender: FDA-Public Use
  Company Number: TW-009507513-2012TWN002742

PATIENT
  Age: 65 Year
  Sex: Male
  Weight: 55 kg

DRUGS (3)
  1. JANUMET [Suspect]
     Active Substance: METFORMIN HYDROCHLORIDE\SITAGLIPTIN PHOSPHATE
     Dosage: 1 TABLET TWICE A DAY
     Route: 048
     Dates: start: 20170607, end: 20201122
  2. COMPESOLON [Concomitant]
     Active Substance: PREDNISOLONE
     Dosage: 1 TAB ONCE PER DAY ^PINE LAWER^
     Route: 048
  3. ELTROXIN [Concomitant]
     Active Substance: LEVOTHYROXINE
     Dosage: 2 TAB ONCE PER DAY
     Route: 048

REACTIONS (6)
  - Acute kidney injury [Unknown]
  - Hypoglycaemia [Fatal]
  - Cardiac arrest [Recovering/Resolving]
  - Lactic acidosis [Fatal]
  - Vomiting [Recovering/Resolving]
  - Nausea [Recovering/Resolving]

NARRATIVE: CASE EVENT DATE: 20201122
